FAERS Safety Report 6564808-9 (Version None)
Quarter: 2010Q1

REPORT INFORMATION
  Report Type: 
  Country: None (occurrence: None)
  Receive Date: 20100201
  Receipt Date: 20100122
  Transmission Date: 20100710
  Serious: Yes (Other)
  Sender: FDA-Public Use
  Company Number: US-PFIZER INC-2010010024

PATIENT
  Sex: Female
  Weight: 61.688 kg

DRUGS (3)
  1. OGEN [Suspect]
     Indication: HYSTERECTOMY
     Dosage: 2.5 MG, 1X/DAY
     Route: 048
     Dates: end: 20091101
  2. SYNTHROID [Concomitant]
     Indication: THYROID DISORDER
  3. POTASSIUM [Concomitant]
     Indication: BLOOD POTASSIUM DECREASED

REACTIONS (2)
  - BLOOD POTASSIUM DECREASED [None]
  - CONDITION AGGRAVATED [None]
